FAERS Safety Report 6584436-9 (Version None)
Quarter: 2010Q1

REPORT INFORMATION
  Report Type: 
  Country: None (occurrence: None)
  Receive Date: 20100216
  Receipt Date: 20100125
  Transmission Date: 20100710
  Serious: No
  Sender: FDA-Public Use
  Company Number: US-ABBOTT-10P-163-0622292-00

PATIENT
  Sex: Female
  Weight: 100.79 kg

DRUGS (5)
  1. SIMCOR [Suspect]
     Indication: BLOOD CHOLESTEROL INCREASED
     Dosage: 500/20MG
     Dates: start: 20100118
  2. ASPIRIN [Concomitant]
     Indication: DRUG USE FOR UNKNOWN INDICATION
     Route: 048
  3. VATURNA [Concomitant]
     Indication: DRUG USE FOR UNKNOWN INDICATION
     Route: 048
  4. LEVEMIR [Concomitant]
     Indication: DRUG USE FOR UNKNOWN INDICATION
     Route: 048
  5. NOVALOG INSULIN INJECTIONS [Concomitant]
     Indication: DRUG USE FOR UNKNOWN INDICATION
     Dosage: AM/PM

REACTIONS (3)
  - MUSCLE SPASMS [None]
  - PARAESTHESIA [None]
  - PRURITUS [None]
